FAERS Safety Report 8129970-5 (Version None)
Quarter: 2011Q4

REPORT INFORMATION
  Report Type: 
  Country: None (occurrence: None)
  Receive Date: 20111227
  Receipt Date: 20111130
  Transmission Date: 20120403
  Serious: No
  Sender: FDA-Public Use
  Company Number: PHEH2011US02450

PATIENT
  Age: 77 Year
  Sex: Female

DRUGS (7)
  1. GILENYA [Suspect]
     Indication: RELAPSING-REMITTING MULTIPLE SCLEROSIS
     Dosage: 0.5 MG, QD, ORAL
     Route: 048
     Dates: start: 20110721
  2. LIPITOR (ATORVASTATOM CALCIUM) [Concomitant]
  3. BACLOFEN [Concomitant]
  4. AMBIEN [Concomitant]
  5. SYNTHROID [Concomitant]
  6. HYDROCHLOROTHIAZIDE [Concomitant]
  7. PAXIL [Concomitant]

REACTIONS (3)
  - GINGIVAL PAIN [None]
  - GINGIVAL ERYTHEMA [None]
  - CONFUSIONAL STATE [None]
